FAERS Safety Report 4354307-7 (Version None)
Quarter: 2004Q2

REPORT INFORMATION
  Report Type: 
  Country: None (occurrence: None)
  Receive Date: 20040503
  Receipt Date: 20030917
  Transmission Date: 20050107
  Serious: Yes (Other)
  Sender: FDA-Public Use
  Company Number: PHEH2003US08634

PATIENT
  Sex: Female

DRUGS (1)
  1. DIOVAN HCT [Suspect]
     Dosage: ONE TABET DAILY, ORAL
     Route: 048

REACTIONS (2)
  - SWELLING FACE [None]
  - SWOLLEN TONGUE [None]
